FAERS Safety Report 6674913-4 (Version None)
Quarter: 2010Q2

REPORT INFORMATION
  Report Type: 
  Country: None (occurrence: None)
  Receive Date: 20100409
  Receipt Date: 20100401
  Transmission Date: 20101027
  Serious: Yes (Hospitalization, Other)
  Sender: FDA-Public Use
  Company Number: US-SANOFI-AVENTIS-2010SA017878

PATIENT
  Age: 61 Year
  Sex: Female

DRUGS (3)
  1. LANTUS [Suspect]
     Dosage: 40-50 UNITS
     Route: 058
  2. SOLOSTAR [Suspect]
     Dosage: 40-50 UNITS
     Route: 058
  3. PREDNISONE TAB [Concomitant]
     Route: 065

REACTIONS (5)
  - COLITIS ULCERATIVE [None]
  - DEHYDRATION [None]
  - DIABETES MELLITUS INADEQUATE CONTROL [None]
  - DIARRHOEA [None]
  - NEOPLASM MALIGNANT [None]
